FAERS Safety Report 9164737 (Version 2)
Quarter: 2013Q1

REPORT INFORMATION
  Report Type: Spontaneous
  Country: NL (occurrence: None)
  Receive Date: 20130226
  Receipt Date: 20130312
  Transmission Date: 20140127
  Serious: Yes (Other)
  Sender: FDA-Public Use
  Company Number: SYM-2013-00850

PATIENT
  Age: 31 Year
  Sex: Male

DRUGS (3)
  1. WELLBUTRIN [Suspect]
     Indication: PRODUCT USED FOR UNKNOWN INDICATION
     Dates: start: 2011
  2. FLUVOXAMINE (FLUVOXAMINE) [Concomitant]
  3. ZYPREXA (OLANZAPINE) [Concomitant]

REACTIONS (5)
  - Cognitive disorder [None]
  - Road traffic accident [None]
  - Disturbance in attention [None]
  - Loss of employment [None]
  - Memory impairment [None]
